FAERS Safety Report 9559184 (Version 2)
Quarter: 2014Q1

REPORT INFORMATION
  Report Type: Spontaneous
  Country: US (occurrence: None)
  Receive Date: 20130906
  Receipt Date: 20131205
  Transmission Date: 20141002
  Serious: No
  Sender: FDA-Public Use
  Company Number: 163-POMAL-13062974

PATIENT
  Age: 84 Year
  Sex: Female

DRUGS (9)
  1. POMALYST [Suspect]
     Indication: PLASMA CELL MYELOMA
     Route: 048
     Dates: start: 20130511
  2. JANUVIA (SITAGLIPTIN PHOSPHATE) [Concomitant]
  3. DIOVAN [Concomitant]
  4. TOPROL XL (METOPROLOL SUCCINATE) (100 MILLIGRAM) (METOPROLOL SUCCINATE) [Concomitant]
  5. ASPIRIN [Concomitant]
  6. GLUCOSAMINE [Concomitant]
  7. FENTANYL [Concomitant]
  8. FISH OIL [Concomitant]
  9. FUROSEMIDE [Concomitant]

REACTIONS (8)
  - Influenza like illness [None]
  - Lethargy [None]
  - Pain in extremity [None]
  - Back pain [None]
  - Fatigue [None]
  - Asthenia [None]
  - Dry skin [None]
  - Stomatitis [None]
